FAERS Safety Report 9517165 (Version 1)
Quarter: 2013Q3

REPORT INFORMATION
  Report Type: Spontaneous
  Country: US (occurrence: US)
  Receive Date: 20130911
  Receipt Date: 20130911
  Transmission Date: 20140515
  Serious: No
  Sender: FDA-Public Use
  Company Number: US-ASTRAZENECA-2013SE52053

PATIENT
  Age: 74 Year
  Sex: Female
  Weight: 55.3 kg

DRUGS (9)
  1. SYMBICORT [Suspect]
     Indication: ASTHMA
     Dosage: 320 MCG, BID
     Route: 055
     Dates: start: 2013, end: 2013
  2. SYMBICORT [Suspect]
     Indication: CHRONIC OBSTRUCTIVE PULMONARY DISEASE
     Dosage: 320 MCG, BID
     Route: 055
     Dates: start: 2013, end: 2013
  3. SYMBICORT [Suspect]
     Indication: ASTHMA
     Route: 055
     Dates: start: 201307
  4. SYMBICORT [Suspect]
     Indication: CHRONIC OBSTRUCTIVE PULMONARY DISEASE
     Route: 055
     Dates: start: 201307
  5. LISINOPRIL [Suspect]
     Indication: BLOOD PRESSURE ABNORMAL
     Route: 048
     Dates: start: 2013, end: 2013
  6. SINGULAR [Concomitant]
  7. MUCINEX [Concomitant]
     Dosage: BID
  8. CLARITIN [Concomitant]
  9. MULTIPLE BP MEDICATIONS [Concomitant]

REACTIONS (5)
  - Feeling abnormal [Unknown]
  - Wheezing [Unknown]
  - Blood pressure increased [Unknown]
  - Erythema [Unknown]
  - Cough [Unknown]
